FAERS Safety Report 5677961-6 (Version None)
Quarter: 2008Q1

REPORT INFORMATION
  Report Type: 
  Country: None (occurrence: None)
  Receive Date: 20080319
  Receipt Date: 20080303
  Transmission Date: 20080703
  Serious: No
  Sender: FDA-Public Use
  Company Number: 002#2#2008-00090

PATIENT
  Age: 63 Year
  Sex: Male
  Weight: 92.5338 kg

DRUGS (12)
  1. NEURO-PATCH-DOSE-UNKNOWN (ROTIGOTINE) [Suspect]
     Indication: PARKINSON'S DISEASE
     Dosage: 2MG/24H, 1 IN 1 D, TRANSDERMAL; 4 MG/24H, 1 IN 1 D, TRANSDERMAL; 6MG/24H, 1 IN 1 D, TRANSDERMAL
     Route: 062
     Dates: start: 20071029, end: 20071101
  2. NEURO-PATCH-DOSE-UNKNOWN (ROTIGOTINE) [Suspect]
     Indication: PARKINSON'S DISEASE
     Dosage: 2MG/24H, 1 IN 1 D, TRANSDERMAL; 4 MG/24H, 1 IN 1 D, TRANSDERMAL; 6MG/24H, 1 IN 1 D, TRANSDERMAL
     Route: 062
     Dates: start: 20071101, end: 20071101
  3. NEURO-PATCH-DOSE-UNKNOWN (ROTIGOTINE) [Suspect]
     Indication: PARKINSON'S DISEASE
     Dosage: 2MG/24H, 1 IN 1 D, TRANSDERMAL; 4 MG/24H, 1 IN 1 D, TRANSDERMAL; 6MG/24H, 1 IN 1 D, TRANSDERMAL
     Route: 062
     Dates: start: 20071212
  4. CARBO/LEVO [Concomitant]
  5. MIRAPEX [Concomitant]
  6. WELLBUTRIN [Concomitant]
  7. SIMVASTATIN [Concomitant]
  8. CLONAZEPAM [Concomitant]
  9. LORTAB [Concomitant]
  10. ATENOLOL [Concomitant]
  11. LYRICA [Concomitant]
  12. CELEBREX [Concomitant]

REACTIONS (3)
  - APPLICATION SITE BURN [None]
  - APPLICATION SITE REACTION [None]
  - SCAR [None]
